FAERS Safety Report 9417423 (Version 1)
Quarter: 2013Q3

REPORT INFORMATION
  Report Type: Spontaneous
  Country: US (occurrence: US)
  Receive Date: 20130724
  Receipt Date: 20130724
  Transmission Date: 20140515
  Serious: No
  Sender: FDA-Public Use
  Company Number: US-MYLANLABS-2013S1009561

PATIENT
  Age: 56 Year
  Sex: Male
  Weight: 99.79 kg

DRUGS (3)
  1. CLONIDINE TRANSDERMAL SYSTEM USP [Suspect]
     Indication: PAIN IN EXTREMITY
     Dosage: ONE PATCH TO EACH FOOD EVERY 4 DAYS
     Route: 062
     Dates: start: 20130409
  2. CLONIDINE TRANSDERMAL SYSTEM USP [Suspect]
     Indication: OFF LABEL USE
     Dosage: ONE PATCH TO EACH FOOD EVERY 4 DAYS
     Route: 062
     Dates: start: 20130409
  3. CLONIDINE TRANSDERMAL SYSTEM USP [Suspect]
     Indication: COMPLEX REGIONAL PAIN SYNDROME
     Dosage: ONE PATCH TO EACH FOOD EVERY 4 DAYS
     Route: 062
     Dates: start: 20130409

REACTIONS (3)
  - Drug ineffective for unapproved indication [Not Recovered/Not Resolved]
  - Pain in extremity [Not Recovered/Not Resolved]
  - Drug administered at inappropriate site [Not Recovered/Not Resolved]
